FAERS Safety Report 5720374-9 (Version None)
Quarter: 2008Q2

REPORT INFORMATION
  Report Type: 
  Country: None (occurrence: None)
  Receive Date: 20080428
  Receipt Date: 20080416
  Transmission Date: 20081010
  Serious: Yes (Death, Life-Threatening)
  Sender: FDA-Public Use
  Company Number: FR-PFIZER INC-2008034150

PATIENT
  Sex: Female

DRUGS (12)
  1. LYRICA [Suspect]
     Indication: NEUROPATHY PERIPHERAL
     Route: 048
     Dates: start: 20071117, end: 20071212
  2. REVLIMID [Suspect]
     Indication: MULTIPLE MYELOMA
     Route: 048
     Dates: start: 20071203, end: 20071212
  3. RIVOTRIL [Suspect]
     Route: 048
     Dates: start: 20071109, end: 20071210
  4. ASPIRIN [Concomitant]
     Dates: start: 20071130, end: 20071213
  5. DAFLON [Concomitant]
     Dates: start: 20071128, end: 20071201
  6. PARACETAMOL [Concomitant]
  7. SKENAN [Concomitant]
  8. VITAMIN B-12 [Concomitant]
  9. PANTOPRAZOLE SODIUM [Concomitant]
  10. EPREX [Concomitant]
  11. CORTANCYL [Concomitant]
  12. FORLAX [Concomitant]

REACTIONS (3)
  - APATHY [None]
  - CONFUSIONAL STATE [None]
  - DISORIENTATION [None]
